FAERS Safety Report 8912810 (Version 1)
Quarter: 2012Q4

REPORT INFORMATION
  Report Type: 
  Country: US (occurrence: US)
  Receive Date: 20121116
  Receipt Date: 20121116
  Transmission Date: 20130627
  Serious: No
  Sender: FDA-Public Use
  Company Number: US-PFIZER INC-2012287127

PATIENT
  Age: 92 Year
  Sex: Male
  Weight: 70.3 kg

DRUGS (3)
  1. ATORVASTATIN CALCIUM [Suspect]
     Indication: HIGH CHOLESTEROL
     Dosage: 40 mg, 1x/day
     Route: 048
     Dates: start: 201209
  2. IMDUR [Concomitant]
     Dosage: UNK
  3. BABY ASPIRIN [Concomitant]
     Dosage: 81 mg, 2x/day

REACTIONS (1)
  - Alopecia [Not Recovered/Not Resolved]
